FAERS Safety Report 4597394-3 (Version None)
Quarter: 2005Q1

REPORT INFORMATION
  Report Type: 
  Country: None (occurrence: None)
  Receive Date: 20050303
  Receipt Date: 20041214
  Transmission Date: 20050727
  Serious: No
  Sender: FDA-Public Use
  Company Number: US-GLAXOSMITHKLINE-A0537257A

PATIENT
  Age: 81 Year
  Sex: Male

DRUGS (6)
  1. REQUIP [Suspect]
     Indication: PARKINSON'S DISEASE
     Route: 048
  2. ZOCOR [Concomitant]
  3. SINEMET [Concomitant]
  4. DITROPAN [Concomitant]
  5. METFORMIN [Concomitant]
  6. DETROL [Concomitant]

REACTIONS (2)
  - HYPONATRAEMIA [None]
  - TREMOR [None]
